FAERS Safety Report 9646106 (Version 1)
Quarter: 2013Q4

REPORT INFORMATION
  Report Type: Spontaneous
  Country: US (occurrence: US)
  Receive Date: 20131025
  Receipt Date: 20131025
  Transmission Date: 20140711
  Serious: Yes (Death)
  Sender: FDA-Public Use
  Company Number: US-BRISTOL-MYERS SQUIBB COMPANY-19638568

PATIENT
  Age: 62 Year
  Sex: Male
  Weight: 122.1 kg

DRUGS (11)
  1. BYETTA [Suspect]
     Route: 058
  2. LISINOPRIL [Concomitant]
  3. HYDROCHLOROTHIAZIDE [Concomitant]
  4. LANTUS [Concomitant]
  5. PROMETHAZINE [Concomitant]
  6. ZYRTEC [Concomitant]
  7. ZOLPIDEM [Concomitant]
  8. VIAGRA [Concomitant]
     Indication: LIBIDO DECREASED
  9. ALLEGRA [Concomitant]
     Indication: DERMATITIS ALLERGIC
  10. ALBUTEROL [Concomitant]
     Indication: WHEEZING
     Dosage: 1DF:2 PUFFS
  11. MAGNESIUM OXIDE [Concomitant]
     Indication: MUSCLE SPASMS
     Dosage: WITH 15MG ZINC

REACTIONS (1)
  - Pancreatic carcinoma metastatic [Fatal]
